FAERS Safety Report 7812395-7 (Version None)
Quarter: 2011Q4

REPORT INFORMATION
  Report Type: 
  Country: None (occurrence: None)
  Receive Date: 20111013
  Receipt Date: 20111006
  Transmission Date: 20120403
  Serious: Yes (Other)
  Sender: FDA-Public Use
  Company Number: US-SANOFI-AVENTIS-2011SA066047

PATIENT
  Age: 83 Year
  Sex: Male
  Weight: 81.81 kg

DRUGS (9)
  1. GINKGO BILOBA [Concomitant]
  2. PLAVIX [Suspect]
     Indication: STENT PLACEMENT
     Route: 048
     Dates: start: 20080101
  3. VITAMIN B-12 [Concomitant]
     Dosage: DOSE:1000 UNIT(S)
  4. OXYBUTYNIN [Concomitant]
  5. FAMOTIDINE [Concomitant]
  6. COREG [Concomitant]
     Dosage: 3.5MG HALF TABLET
  7. ASPIRIN [Concomitant]
  8. SIMVASTATIN [Concomitant]
  9. IRON [Concomitant]

REACTIONS (15)
  - CONTUSION [None]
  - DYSPNOEA [None]
  - MEMORY IMPAIRMENT [None]
  - GASTROINTESTINAL MOTILITY DISORDER [None]
  - PURPURA [None]
  - HAEMORRHAGIC DIATHESIS [None]
  - VISUAL ACUITY REDUCED [None]
  - TAENIASIS [None]
  - FATIGUE [None]
  - DEAFNESS [None]
  - COGNITIVE DISORDER [None]
  - BLOOD PRESSURE INCREASED [None]
  - WEIGHT DECREASED [None]
  - BLADDER DYSFUNCTION [None]
  - CONFUSIONAL STATE [None]
